FAERS Safety Report 24674261 (Version 1)
Quarter: 2024Q4

REPORT INFORMATION
  Report Type: Spontaneous
  Country: US (occurrence: US)
  Receive Date: 20241128
  Receipt Date: 20241128
  Transmission Date: 20250115
  Serious: No
  Sender: MERCK
  Company Number: US-009507513-2411USA001120

PATIENT
  Sex: Female

DRUGS (2)
  1. KEYTRUDA [Suspect]
     Active Substance: PEMBROLIZUMAB
     Indication: Clear cell sarcoma of soft tissue
     Dosage: 2 MILLIGRAM/KILOGRAM, Q3W
  2. KEYTRUDA [Suspect]
     Active Substance: PEMBROLIZUMAB
     Indication: Mediastinum neoplasm

REACTIONS (2)
  - Skin toxicity [Unknown]
  - Off label use [Unknown]
